FAERS Safety Report 8183838-7 (Version None)
Quarter: 2012Q1

REPORT INFORMATION
  Report Type: 
  Country: None (occurrence: None)
  Receive Date: 20120305
  Receipt Date: 20120229
  Transmission Date: 20120608
  Serious: No
  Sender: FDA-Public Use
  Company Number: US-PFIZER INC-2012054560

PATIENT
  Sex: Male
  Weight: 74.83 kg

DRUGS (6)
  1. CHANTIX [Suspect]
     Dosage: 0.5 MG, 1X/DAY
     Route: 048
     Dates: start: 20110901, end: 20120201
  2. EPIVIR [Concomitant]
     Indication: HIV TEST POSITIVE
     Dosage: UNK
  3. ISENTRESS [Concomitant]
     Indication: HIV TEST POSITIVE
     Dosage: UNK
  4. ZIDOVUDINE [Concomitant]
     Indication: HIV TEST POSITIVE
     Dosage: UNK
  5. CHANTIX [Suspect]
     Indication: SMOKING CESSATION THERAPY
     Dosage: 0.5 MG, 1X/DAY
     Route: 048
     Dates: start: 20110101, end: 20110801
  6. KALETRA [Concomitant]
     Indication: HIV TEST POSITIVE
     Dosage: UNK

REACTIONS (4)
  - FATIGUE [None]
  - INSOMNIA [None]
  - ABNORMAL DREAMS [None]
  - FEELING ABNORMAL [None]
